FAERS Safety Report 4436806-2 (Version None)
Quarter: 2004Q3

REPORT INFORMATION
  Report Type: 
  Country: None (occurrence: None)
  Receive Date: 20040830
  Receipt Date: 20040817
  Transmission Date: 20050211
  Serious: Yes (Hospitalization)
  Sender: FDA-Public Use
  Company Number: FR-BRISTOL-MYERS SQUIBB COMPANY-12673695

PATIENT
  Age: 57 Year
  Sex: Female
  Weight: 58 kg

DRUGS (1)
  1. KENACORT INJ 40 MG/ML [Suspect]
     Indication: KELOID SCAR
     Route: 030
     Dates: start: 20040630, end: 20040630

REACTIONS (3)
  - BACK PAIN [None]
  - FLUSHING [None]
  - MALAISE [None]
